FAERS Safety Report 11650851 (Version 1)
Quarter: 2015Q4

REPORT INFORMATION
  Report Type: Spontaneous
  Country: US (occurrence: US)
  Receive Date: 20151021
  Receipt Date: 20151021
  Transmission Date: 20160304
  Serious: No
  Sender: FDA-Public Use
  Company Number: US-PFIZER INC-2015349722

PATIENT
  Age: 45 Year
  Sex: Female
  Weight: 54 kg

DRUGS (1)
  1. ZOLOFT [Suspect]
     Active Substance: SERTRALINE HYDROCHLORIDE
     Dosage: UNK

REACTIONS (4)
  - Hypersensitivity [Unknown]
  - Folate deficiency [Unknown]
  - Drug ineffective [Unknown]
  - Dysphonia [Unknown]
